FAERS Safety Report 15094087 (Version 2)
Quarter: 2018Q4

REPORT INFORMATION
  Report Type: Report from Study
  Country: None (occurrence: PT)
  Receive Date: 20180630
  Receipt Date: 20181120
  Transmission Date: 20190204
  Serious: Yes (Other)
  Sender: FDA-Public Use
  Company Number: PT-ABBVIE-18K-130-2404630-00

PATIENT
  Age: 33 Year
  Sex: Female

DRUGS (5)
  1. HUMIRA [Suspect]
     Active Substance: ADALIMUMAB
     Route: 058
     Dates: start: 20181116
  2. FOLICIL [Concomitant]
     Active Substance: FOLIC ACID
     Indication: PREGNANCY
     Route: 048
     Dates: start: 201806
  3. HUMIRA [Suspect]
     Active Substance: ADALIMUMAB
     Dosage: 1 AD
     Route: 058
     Dates: start: 20180412, end: 201806
  4. HUMIRA [Suspect]
     Active Substance: ADALIMUMAB
     Indication: CROHN^S DISEASE
     Dosage: LOADING DOSE 1?4 AD
     Route: 058
     Dates: start: 20180315, end: 20180315
  5. HUMIRA [Suspect]
     Active Substance: ADALIMUMAB
     Dosage: LOADING DOSE 2?2 AD
     Route: 058
     Dates: start: 20180329, end: 20180329

REACTIONS (3)
  - Exposure during pregnancy [Unknown]
  - Muscular weakness [Recovered/Resolved]
  - Ectopic pregnancy [Unknown]

NARRATIVE: CASE EVENT DATE: 2018
